FAERS Safety Report 16090728 (Version 1)
Quarter: 2019Q1

REPORT INFORMATION
  Report Type: Spontaneous
  Country: CA (occurrence: CA)
  Receive Date: 20190319
  Receipt Date: 20190319
  Transmission Date: 20190418
  Serious: Yes (Other)
  Sender: FDA-Public Use
  Company Number: CA-ASPEN-GLO2019CA002505

PATIENT
  Age: 54 Year

DRUGS (9)
  1. CYCLOSPORIN A [Suspect]
     Active Substance: CYCLOSPORINE
     Indication: GRAFT VERSUS HOST DISEASE
     Route: 065
  2. CAMPATH [Suspect]
     Active Substance: ALEMTUZUMAB
     Indication: PROPHYLAXIS
  3. BUSULFAN. [Suspect]
     Active Substance: BUSULFAN
     Indication: STEM CELL TRANSPLANT
     Dosage: 3.2 MG/KG, QD
     Route: 065
  4. FLUDARABINE [Suspect]
     Active Substance: FLUDARABINE PHOSPHATE
     Indication: STEM CELL TRANSPLANT
     Dosage: 50 MG/M2, QD
     Route: 065
  5. FLUDARABINE [Suspect]
     Active Substance: FLUDARABINE PHOSPHATE
     Indication: BONE MARROW CONDITIONING REGIMEN
  6. MOZOBIL [Suspect]
     Active Substance: PLERIXAFOR
     Indication: HAEMATOPOIETIC STEM CELL MOBILISATION
     Dosage: 240 MCG/KG GIVEN 6 HOURS BEFORE THE ADMINISTRATION OF FLUDARABINE,
     Route: 058
  7. BUSULFAN. [Suspect]
     Active Substance: BUSULFAN
     Indication: BONE MARROW CONDITIONING REGIMEN
  8. CYCLOSPORIN A [Suspect]
     Active Substance: CYCLOSPORINE
     Indication: PROPHYLAXIS
  9. CAMPATH [Suspect]
     Active Substance: ALEMTUZUMAB
     Indication: GRAFT VERSUS HOST DISEASE
     Route: 065

REACTIONS (3)
  - Febrile neutropenia [Unknown]
  - Herpes simplex [Unknown]
  - Mucosal inflammation [Unknown]
